FAERS Safety Report 16013471 (Version 1)
Quarter: 2019Q1

REPORT INFORMATION
  Report Type: Spontaneous
  Country: SK (occurrence: SK)
  Receive Date: 20190227
  Receipt Date: 20190227
  Transmission Date: 20190418
  Serious: Yes (Hospitalization, Other)
  Sender: FDA-Public Use
  Company Number: SK-ASTRAZENECA-2019SE31327

PATIENT
  Age: 32 Year
  Sex: Male
  Weight: 92 kg

DRUGS (10)
  1. PREDNISONE. [Interacting]
     Active Substance: PREDNISONE
     Dosage: 20.0MG UNKNOWN
     Route: 065
  2. FORMOTEROL [Concomitant]
     Active Substance: FORMOTEROL
  3. PREDNISONE. [Interacting]
     Active Substance: PREDNISONE
     Dosage: 80.0MG UNKNOWN
     Route: 065
  4. PREDNISONE. [Interacting]
     Active Substance: PREDNISONE
     Dosage: 40.0MG UNKNOWN
     Route: 065
  5. ALFACALCIDOL [Concomitant]
     Active Substance: ALFACALCIDOL
  6. PREDNISONE. [Interacting]
     Active Substance: PREDNISONE
     Dosage: 30.0MG UNKNOWN
     Route: 065
  7. OMEPRAZOL [Suspect]
     Active Substance: OMEPRAZOLE
     Route: 048
  8. CYCLOPHOSPHAMIDE. [Interacting]
     Active Substance: CYCLOPHOSPHAMIDE
     Route: 065
     Dates: end: 201612
  9. RAMIPRIL. [Concomitant]
     Active Substance: RAMIPRIL
  10. SALBUTAMOL [Concomitant]
     Active Substance: ALBUTEROL

REACTIONS (2)
  - Fracture [Recovering/Resolving]
  - Osteoporosis [Recovering/Resolving]

NARRATIVE: CASE EVENT DATE: 201412
